FAERS Safety Report 6344814-X (Version None)
Quarter: 2009Q3

REPORT INFORMATION
  Report Type: 
  Country: None (occurrence: None)
  Receive Date: 20090904
  Receipt Date: 20090817
  Transmission Date: 20100115
  Serious: Yes (Hospitalization)
  Sender: FDA-Public Use
  Company Number: 2009AL002556

PATIENT
  Age: 84 Year
  Sex: Female

DRUGS (2)
  1. DIGOXIN [Suspect]
     Dosage: PO
     Route: 048
  2. ASPIRIN [Concomitant]

REACTIONS (12)
  - ANXIETY [None]
  - BLOOD PRESSURE SYSTOLIC INCREASED [None]
  - DIVERTICULUM [None]
  - ECONOMIC PROBLEM [None]
  - GASTRIC ULCER [None]
  - GASTRITIS [None]
  - HAEMORRHOIDS [None]
  - HEART INJURY [None]
  - IRON DEFICIENCY ANAEMIA [None]
  - MULTIPLE INJURIES [None]
  - OESOPHAGITIS [None]
  - PAIN [None]
